FAERS Safety Report 13821939 (Version 2)
Quarter: 2017Q3

REPORT INFORMATION
  Report Type: Spontaneous
  Country: IT (occurrence: IT)
  Receive Date: 20170801
  Receipt Date: 20170811
  Transmission Date: 20171127
  Serious: Yes (Hospitalization, Other)
  Sender: FDA-Public Use
  Company Number: IT-TEVA-791820ACC

PATIENT
  Age: 42 Year
  Sex: Female

DRUGS (7)
  1. VALPROATE SODIUM. [Interacting]
     Active Substance: VALPROATE SODIUM
     Dosage: 800 MG/DAY
     Route: 065
  2. CLOZAPINE. [Interacting]
     Active Substance: CLOZAPINE
     Indication: BORDERLINE PERSONALITY DISORDER
     Dates: start: 20070101
  3. SERTRALINE [Suspect]
     Active Substance: SERTRALINE HYDROCHLORIDE
     Indication: SCHIZOPHRENIA
     Dates: start: 20150801
  4. CLOZAPINE. [Interacting]
     Active Substance: CLOZAPINE
     Indication: SCHIZOPHRENIA
     Dosage: 400 MG/DAY
     Route: 048
     Dates: start: 2007
  5. VALPROATE SODIUM. [Suspect]
     Active Substance: VALPROATE SODIUM
     Indication: SCHIZOPHRENIA
     Dates: start: 20150801
  6. SERTRALINE [Suspect]
     Active Substance: SERTRALINE HYDROCHLORIDE
     Dosage: 100 MG/DAY
     Route: 065
  7. ZUCLOPENTHIXOL [Concomitant]
     Active Substance: ZUCLOPENTHIXOL
     Dosage: 20 MG/DAY
     Route: 065

REACTIONS (5)
  - Pericardial effusion [Unknown]
  - Serositis [Recovering/Resolving]
  - Cardiomegaly [Unknown]
  - Pleural effusion [Unknown]
  - Drug interaction [Unknown]
